FAERS Safety Report 9991942 (Version 2)
Quarter: 2014Q1

REPORT INFORMATION
  Report Type: Spontaneous
  Country: US (occurrence: US)
  Receive Date: 20140310
  Receipt Date: 20140326
  Transmission Date: 20141002
  Serious: Yes (Other)
  Sender: FDA-Public Use
  Company Number: US-TEVA-467017USA

PATIENT
  Age: 25 Year
  Sex: Female
  Weight: 81.27 kg

DRUGS (1)
  1. PARAGARD 380A [Suspect]
     Indication: CONTRACEPTION
     Route: 015
     Dates: start: 20140206, end: 20140220

REACTIONS (1)
  - Device dislocation [Recovered/Resolved]
